FAERS Safety Report 15704006 (Version 1)
Quarter: 2018Q4

REPORT INFORMATION
  Report Type: Spontaneous
  Country: US (occurrence: US)
  Receive Date: 20181210
  Receipt Date: 20181210
  Transmission Date: 20190205
  Serious: No
  Sender: FDA-Public Use
  Company Number: US-MYLANLABS-2018M1089008

PATIENT
  Age: 87 Year
  Sex: Male
  Weight: 75 kg

DRUGS (1)
  1. OMEPRAZOLE DELAYED-RELEASE CAPSULES, USP [Suspect]
     Active Substance: OMEPRAZOLE
     Indication: OESOPHAGEAL DISORDER
     Dosage: 1 DOSAGE FORM, QD
     Route: 048

REACTIONS (2)
  - Myalgia [Not Recovered/Not Resolved]
  - Influenza [Unknown]
